FAERS Safety Report 20074262 (Version 1)
Quarter: 2021Q4

REPORT INFORMATION
  Report Type: Spontaneous
  Country: FR (occurrence: FR)
  Receive Date: 20211116
  Receipt Date: 20211116
  Transmission Date: 20220303
  Serious: Yes (Congenital Anomaly, Other)
  Sender: FDA-Public Use
  Company Number: FR-ABBVIE-21K-056-4160526-00

PATIENT
  Sex: Male

DRUGS (3)
  1. VALPROATE SODIUM [Suspect]
     Active Substance: VALPROATE SODIUM
     Indication: Maternal exposure timing unspecified
     Route: 064
  2. HERBALS\METHENAMINE HIPPURATE\PHENOBARBITAL [Suspect]
     Active Substance: HERBALS\METHENAMINE HIPPURATE\PHENOBARBITAL
     Indication: Maternal exposure timing unspecified
     Route: 064
  3. PHENOBARBITAL [Suspect]
     Active Substance: PHENOBARBITAL
     Indication: Maternal exposure timing unspecified
     Route: 064

REACTIONS (93)
  - Faecaloma [Unknown]
  - Premature baby [Unknown]
  - Colitis ulcerative [Unknown]
  - Necrotising enterocolitis neonatal [Unknown]
  - Pneumatosis intestinalis [Unknown]
  - Enterococcal sepsis [Unknown]
  - Pneumatosis intestinalis [Unknown]
  - Hallucination, auditory [Unknown]
  - Delirium [Unknown]
  - Rebound psychosis [Unknown]
  - Schizophrenia [Unknown]
  - Apraxia [Unknown]
  - Unresponsive to stimuli [Unknown]
  - Mental disorder [Unknown]
  - Cognitive disorder [Unknown]
  - Apathy [Unknown]
  - Mutism [Unknown]
  - Catatonia [Unknown]
  - Hypertonia neonatal [Unknown]
  - Hypotonia [Unknown]
  - Gross motor delay [Unknown]
  - Balance disorder [Unknown]
  - Coordination abnormal [Unknown]
  - Intellectual disability [Unknown]
  - Hallucination [Unknown]
  - Epilepsy [Unknown]
  - Petit mal epilepsy [Unknown]
  - Major depression [Unknown]
  - Somatic hallucination [Unknown]
  - Congenital foot malformation [Unknown]
  - Talipes [Unknown]
  - Foot deformity [Unknown]
  - Tibial torsion [Unknown]
  - Hyperreflexia [Unknown]
  - Scoliosis [Unknown]
  - Myopia [Unknown]
  - Fine motor skill dysfunction [Unknown]
  - Strabismus [Unknown]
  - Kyphosis [Unknown]
  - Diplopia [Unknown]
  - Learning disorder [Unknown]
  - Learning disorder [Unknown]
  - Disorientation [Unknown]
  - Enuresis [Unknown]
  - Language disorder [Unknown]
  - Disturbance in attention [Unknown]
  - Dysgraphia [Unknown]
  - Speech disorder developmental [Unknown]
  - Aphasia [Unknown]
  - Psychomotor skills impaired [Unknown]
  - Disorientation [Unknown]
  - Cognitive linguistic deficit [Unknown]
  - Social (pragmatic) communication disorder [Unknown]
  - Memory impairment [Unknown]
  - Developmental delay [Unknown]
  - Arthropathy [Unknown]
  - Confusional state [Unknown]
  - Cognitive disorder [Unknown]
  - Dyspraxia [Unknown]
  - Cognitive disorder [Unknown]
  - Bradyphrenia [Unknown]
  - Hypertonia [Unknown]
  - Dysmorphism [Unknown]
  - Social avoidant behaviour [Unknown]
  - Aggression [Unknown]
  - Persecutory delusion [Unknown]
  - Hip deformity [Unknown]
  - Psychomotor retardation [Unknown]
  - Cognitive disorder [Unknown]
  - Anxiety [Unknown]
  - Winged scapula [Unknown]
  - Congenital foot malformation [Unknown]
  - Intervertebral disc protrusion [Unknown]
  - Visual impairment [Unknown]
  - Psychiatric symptom [Unknown]
  - Eating disorder [Unknown]
  - Suicidal ideation [Unknown]
  - Intentional self-injury [Unknown]
  - Personal relationship issue [Unknown]
  - Joint laxity [Unknown]
  - Loss of personal independence in daily activities [Unknown]
  - Loss of personal independence in daily activities [Unknown]
  - Food refusal [Unknown]
  - Mixed anxiety and depressive disorder [Unknown]
  - Constipation [Unknown]
  - Regurgitation [Unknown]
  - Malnutrition [Unknown]
  - Sleep disorder [Unknown]
  - Enuresis [Unknown]
  - Gastrooesophageal reflux disease [Unknown]
  - Headache [Unknown]
  - Treatment noncompliance [Unknown]
  - Foetal exposure during pregnancy [Unknown]

NARRATIVE: CASE EVENT DATE: 19930301
